FAERS Safety Report 4385514-5 (Version None)
Quarter: 2004Q2

REPORT INFORMATION
  Report Type: 
  Country: None (occurrence: None)
  Receive Date: 20040622
  Receipt Date: 20040609
  Transmission Date: 20050107
  Serious: Yes (Hospitalization)
  Sender: FDA-Public Use
  Company Number: 02100-JPN-04-0155

PATIENT
  Age: 72 Year
  Sex: Female

DRUGS (8)
  1. CILOSTAZOL [Suspect]
     Indication: THROMBOTIC STROKE
     Dosage: 200 MG ORAL
     Route: 048
     Dates: start: 20040502, end: 20040517
  2. CILOSTAZOL [Suspect]
     Indication: THROMBOTIC STROKE
     Dosage: 200 MG ORAL
     Route: 048
     Dates: start: 20040518, end: 20040607
  3. BENIPIDINE HYDROCHLORIDE [Concomitant]
  4. GLYCYRRHIZIC ACID/DL-METHIONINE COMBINED DRUG [Concomitant]
  5. SULPIRIDE [Concomitant]
  6. ............ [Concomitant]
  7. TRAZODONE HCL [Concomitant]
  8. TRIAZOLAM [Concomitant]

REACTIONS (5)
  - DECREASED APPETITE [None]
  - HEADACHE [None]
  - PLATELET COUNT DECREASED [None]
  - PROTHROMBIN LEVEL DECREASED [None]
  - SUBDURAL HAEMATOMA [None]
